FAERS Safety Report 8193816-X (Version None)
Quarter: 2012Q1

REPORT INFORMATION
  Report Type: 
  Country: None (occurrence: None)
  Receive Date: 20120308
  Receipt Date: 20120301
  Transmission Date: 20120608
  Serious: Yes (Other)
  Sender: FDA-Public Use
  Company Number: PHHY2012GB017915

PATIENT
  Age: 57 Year
  Sex: Female

DRUGS (1)
  1. DOCETAXEL [Suspect]
     Indication: BREAST CANCER
     Dosage: 160 MG, UNK
     Route: 042
     Dates: start: 20120104

REACTIONS (3)
  - HEADACHE [None]
  - BACK PAIN [None]
  - FLUSHING [None]
